FAERS Safety Report 15802182 (Version 1)
Quarter: 2019Q1

REPORT INFORMATION
  Report Type: Spontaneous
  Country: US (occurrence: US)
  Receive Date: 20190108
  Receipt Date: 20190108
  Transmission Date: 20190417
  Serious: Yes (Disabling)
  Sender: FDA-Public Use
  Company Number: None

PATIENT
  Age: 85 Year
  Sex: Female

DRUGS (2)
  1. BACTRIM [Concomitant]
     Active Substance: SULFAMETHOXAZOLE\TRIMETHOPRIM
  2. BACTRIM [Suspect]
     Active Substance: SULFAMETHOXAZOLE\TRIMETHOPRIM
     Route: 048

REACTIONS (8)
  - Asthenia [None]
  - Rash [None]
  - Chills [None]
  - Skin lesion [None]
  - Diarrhoea [None]
  - Pyrexia [None]
  - Stevens-Johnson syndrome [None]
  - Acute kidney injury [None]

NARRATIVE: CASE EVENT DATE: 20181105
